FAERS Safety Report 18814689 (Version 5)
Quarter: 2021Q1

REPORT INFORMATION
  Report Type: Spontaneous
  Country: GB (occurrence: GB)
  Receive Date: 20210201
  Receipt Date: 20210222
  Transmission Date: 20210419
  Serious: Yes (Death, Other)
  Sender: FDA-Public Use
  Company Number: GB-MYLANLABS-2021M1005539

PATIENT
  Age: 73 Year
  Sex: Male
  Weight: 83 kg

DRUGS (7)
  1. PERJETA [Suspect]
     Active Substance: PERTUZUMAB
     Indication: CHOLANGIOCARCINOMA
     Dosage: 420 MILLIGRAM EVERY 3 WEEKS
     Route: 042
     Dates: start: 20200626, end: 20200803
  2. LANSOPRAZOLE. [Concomitant]
     Active Substance: LANSOPRAZOLE
     Dosage: 30 MILLIGRAM, BID
     Route: 065
  3. TINZAPARIN [Concomitant]
     Active Substance: TINZAPARIN
     Indication: PULMONARY EMBOLISM
     Dosage: 15000 INTERNATIONAL UNIT, QD
     Route: 058
     Dates: start: 20200617
  4. LANSOPRAZOLE. [Concomitant]
     Active Substance: LANSOPRAZOLE
     Dosage: 30 MILLIGRAM, QD
     Route: 048
     Dates: start: 201902
  5. CARVEDILOL. [Concomitant]
     Active Substance: CARVEDILOL
     Indication: VARICOSE VEIN
     Dosage: 6.25 MILLIGRAM, BID
     Route: 048
     Dates: start: 202007
  6. DOCUSATE [Concomitant]
     Active Substance: DOCUSATE
     Dosage: 100 MILLIGRAM, BID
     Route: 065
  7. TRASTUZUMAB. [Suspect]
     Active Substance: TRASTUZUMAB
     Indication: CHOLANGIOCARCINOMA
     Dosage: 504 MILLIGRAM EVERY 3 WEEKS
     Route: 042
     Dates: start: 20200626, end: 20200803

REACTIONS (6)
  - Nausea [Unknown]
  - Off label use [Unknown]
  - Intentional product use issue [Unknown]
  - Disease progression [Fatal]
  - Pain [Unknown]
  - Pyrexia [Recovered/Resolved]
